FAERS Safety Report 17356807 (Version 1)
Quarter: 2020Q1

REPORT INFORMATION
  Report Type: Spontaneous
  Country: BR (occurrence: BR)
  Receive Date: 20200131
  Receipt Date: 20200131
  Transmission Date: 20200409
  Serious: Yes (Other)
  Sender: FDA-Public Use
  Company Number: BR-NAPPMUNDI-GBR-2020-0074752

PATIENT
  Age: 52 Year
  Sex: Female

DRUGS (6)
  1. RESTIVA [Suspect]
     Active Substance: BUPRENORPHINE
     Indication: SPINAL FUSION SURGERY
     Dosage: 5 MCG, Q1H (STRENGTH 5MG, ONE PATCH EACH SEVEN DAYS)
     Route: 062
     Dates: start: 20191225, end: 20200115
  2. RESTIVA [Suspect]
     Active Substance: BUPRENORPHINE
     Indication: NEUROPATHY PERIPHERAL
  3. PANTOPRAZOL [Concomitant]
     Active Substance: PANTOPRAZOLE SODIUM
     Dosage: 40 MG, BID
     Route: 048
  4. PREGABALIN. [Concomitant]
     Active Substance: PREGABALIN
     Dosage: 150 MG, BID
     Route: 048
  5. ATORVASTATIN CALCIUM. [Concomitant]
     Active Substance: ATORVASTATIN CALCIUM
     Dosage: 20 MG, BID
  6. RIVOTRIL [Concomitant]
     Active Substance: CLONAZEPAM
     Dosage: 2 MG, NOCTE
     Route: 048

REACTIONS (4)
  - Application site wound [Unknown]
  - Product adhesion issue [Unknown]
  - Product quality issue [Unknown]
  - Application site hypersensitivity [Unknown]

NARRATIVE: CASE EVENT DATE: 20191226
